FAERS Safety Report 16122545 (Version 1)
Quarter: 2019Q2

REPORT INFORMATION
  Report Type: Spontaneous
  Country: US (occurrence: US)
  Receive Date: 20190326
  Receipt Date: 20190326
  Transmission Date: 20190711
  Serious: No
  Sender: FDA-Public Use
  Company Number: None

PATIENT
  Age: 66 Year
  Sex: Female
  Weight: 75.6 kg

DRUGS (1)
  1. VALACYCLOVIR HCL 500 MG TABLET IN A DRUGSTORE BOTTLE NOT ORIGINAL BOX [Suspect]
     Active Substance: VALACYCLOVIR HYDROCHLORIDE
     Indication: ANTIVIRAL TREATMENT
     Dosage: ?          QUANTITY:2 TABLET(S);?
     Route: 048
     Dates: start: 20190201, end: 20190322

REACTIONS (4)
  - Product substitution issue [None]
  - Influenza like illness [None]
  - Irritability [None]
  - Symptom recurrence [None]

NARRATIVE: CASE EVENT DATE: 20190323
